FAERS Safety Report 12768948 (Version 1)
Quarter: 2016Q3

REPORT INFORMATION
  Report Type: Spontaneous
  Country: US (occurrence: US)
  Receive Date: 20160921
  Receipt Date: 20160921
  Transmission Date: 20161109
  Serious: No
  Sender: FDA-Public Use
  Company Number: PHEH2016US024096

PATIENT
  Sex: Male

DRUGS (1)
  1. AFINITOR [Suspect]
     Active Substance: EVEROLIMUS
     Indication: CARCINOID TUMOUR
     Dosage: 5 MG, QD
     Route: 048
     Dates: start: 20150515

REACTIONS (2)
  - Malignant neoplasm progression [Unknown]
  - Product use issue [Unknown]
